FAERS Safety Report 14017061 (Version 1)
Quarter: 2017Q3

REPORT INFORMATION
  Report Type: Spontaneous
  Country: US (occurrence: US)
  Receive Date: 20170927
  Receipt Date: 20170927
  Transmission Date: 20171128
  Serious: No
  Sender: FDA-Public Use
  Company Number: US-009507513-1709USA011976

PATIENT
  Sex: Female

DRUGS (3)
  1. ZITHROMAX [Concomitant]
     Active Substance: AZITHROMYCIN DIHYDRATE
     Indication: RESPIRATION ABNORMAL
  2. PROVENTIL [Suspect]
     Active Substance: ALBUTEROL
     Indication: RESPIRATION ABNORMAL
     Dosage: AS NEEDED
     Route: 055
  3. PREDNISONE. [Suspect]
     Active Substance: PREDNISONE
     Indication: RESPIRATION ABNORMAL
     Route: 048

REACTIONS (3)
  - Wheezing [Not Recovered/Not Resolved]
  - Drug dose omission [Unknown]
  - Product quality issue [Unknown]
